FAERS Safety Report 7071754-3 (Version None)
Quarter: 2010Q4

REPORT INFORMATION
  Report Type: 
  Country: None (occurrence: None)
  Receive Date: 20101029
  Receipt Date: 20091015
  Transmission Date: 20110411
  Serious: No
  Sender: FDA-Public Use
  Company Number: A0811998A

PATIENT
  Age: 10 Year
  Sex: Female

DRUGS (5)
  1. ADVAIR DISKUS 100/50 [Suspect]
     Indication: ASTHMA
     Route: 055
     Dates: start: 20060201, end: 20060401
  2. SINGULAIR [Concomitant]
  3. ALBUTEROL [Concomitant]
  4. NEBULIZER [Concomitant]
  5. ACETAMINOPHEN [Concomitant]

REACTIONS (2)
  - COUGH [None]
  - HEADACHE [None]
